FAERS Safety Report 4474406-9 (Version None)
Quarter: 2004Q4

REPORT INFORMATION
  Report Type: 
  Country: None (occurrence: None)
  Receive Date: 20040909
  Receipt Date: 20040212
  Transmission Date: 20050328
  Serious: No
  Sender: FDA-Public Use
  Company Number: APP200400193

PATIENT
  Sex: Female

DRUGS (4)
  1. OXYTOCIN [Suspect]
     Indication: NORMAL DELIVERY
     Dosage: INTRAVENOUS
     Route: 042
     Dates: start: 20040201, end: 20040201
  2. OXYTOCIN [Suspect]
     Indication: NORMAL LABOUR
     Dosage: INTRAVENOUS
     Route: 042
     Dates: start: 20040201, end: 20040201
  3. OXYTOCIN [Suspect]
  4. OXYTOCIN [Suspect]

REACTIONS (1)
  - DRUG INEFFECTIVE [None]
